FAERS Safety Report 26131418 (Version 1)
Quarter: 2025Q4

REPORT INFORMATION
  Report Type: Spontaneous
  Country: EU (occurrence: EU)
  Receive Date: 20251208
  Receipt Date: 20251208
  Transmission Date: 20260117
  Serious: Yes (Other)
  Sender: B. BRAUN MEDICAL INC.
  Company Number: None

PATIENT
  Age: 51 Year
  Sex: Male
  Weight: 98 kg

DRUGS (2)
  1. ACETAMINOPHEN [Suspect]
     Active Substance: ACETAMINOPHEN
     Indication: Peritonitis
     Dosage: 4X1G
     Dates: start: 20220702, end: 20220704
  2. METAMIZOL [Suspect]
     Active Substance: METAMIZOLE SODIUM
     Indication: Peritonitis
     Dates: start: 20220702, end: 20220704

REACTIONS (2)
  - Rash papular [Unknown]
  - Burning sensation [Unknown]

NARRATIVE: CASE EVENT DATE: 20220704
